FAERS Safety Report 6357312-4 (Version None)
Quarter: 2009Q3

REPORT INFORMATION
  Report Type: 
  Country: None (occurrence: None)
  Receive Date: 20090916
  Receipt Date: 20090911
  Transmission Date: 20100115
  Serious: Yes (Death, Hospitalization, Other)
  Sender: FDA-Public Use
  Company Number: PHEH2009US09397

PATIENT
  Sex: Female

DRUGS (4)
  1. EXJADE [Suspect]
     Indication: MYELODYSPLASTIC SYNDROME
     Dosage: 2000 MG DAILY
     Route: 048
     Dates: start: 20090724
  2. EXJADE [Suspect]
     Indication: IRON OVERLOAD
  3. CLONIDINE [Concomitant]
  4. LISINOPRIL [Concomitant]

REACTIONS (9)
  - DEHYDRATION [None]
  - DYSPNOEA [None]
  - FEBRILE NEUTROPENIA [None]
  - HAEMATOCRIT DECREASED [None]
  - HAEMATURIA [None]
  - HAEMOGLOBIN DECREASED [None]
  - HYPOTENSION [None]
  - PLATELET COUNT DECREASED [None]
  - SEPSIS [None]
